FAERS Safety Report 7051340-1 (Version None)
Quarter: 2010Q4

REPORT INFORMATION
  Report Type: 
  Country: None (occurrence: None)
  Receive Date: 20101012
  Receipt Date: 20101006
  Transmission Date: 20110411
  Serious: Yes (Death)
  Sender: FDA-Public Use
  Company Number: 2010US004170

PATIENT
  Age: 80 Year
  Sex: Male
  Weight: 88 kg

DRUGS (5)
  1. PROGRAF [Suspect]
     Indication: LIVER TRANSPLANT
     Dosage: 2 MG, BID, ORAL
     Route: 048
     Dates: start: 19890124, end: 20091230
  2. PROTONIX [Concomitant]
  3. COZAAR [Concomitant]
  4. XALATAN [Concomitant]
  5. BENTYL [Concomitant]

REACTIONS (1)
  - PULMONARY EMBOLISM [None]
